FAERS Safety Report 7485994-2 (Version None)
Quarter: 2011Q2

REPORT INFORMATION
  Report Type: 
  Country: None (occurrence: None)
  Receive Date: 20110517
  Receipt Date: 20110328
  Transmission Date: 20111010
  Serious: No
  Sender: FDA-Public Use
  Company Number: US-NOVEN-11US002111

PATIENT
  Sex: Female

DRUGS (1)
  1. DAYTRANA [Suspect]
     Indication: ATTENTION DEFICIT/HYPERACTIVITY DISORDER
     Dosage: 30 MG, QD
     Route: 062
     Dates: start: 20090101

REACTIONS (3)
  - PRODUCT QUALITY ISSUE [None]
  - DISTURBANCE IN SOCIAL BEHAVIOUR [None]
  - DRUG ADMINISTRATION ERROR [None]
